FAERS Safety Report 4318553-0 (Version None)
Quarter: 2004Q1

REPORT INFORMATION
  Report Type: 
  Country: None (occurrence: None)
  Receive Date: 20040318
  Receipt Date: 20030917
  Transmission Date: 20041129
  Serious: Yes (Disabling, Other)
  Sender: FDA-Public Use
  Company Number: PHEH2003US08487

PATIENT
  Age: 57 Year
  Sex: Female

DRUGS (8)
  1. PROMETRIUM [Concomitant]
  2. DITROPAN [Concomitant]
  3. DHEA [Concomitant]
  4. ALLOPURINOL [Concomitant]
  5. THYROID TAB [Concomitant]
  6. LESCOL XL [Suspect]
     Indication: HYPERLIPIDAEMIA
     Dosage: 80 MG, QD
     Dates: start: 20020201, end: 20020701
  7. ULTRACET [Concomitant]
  8. HALCION [Concomitant]

REACTIONS (11)
  - ARTHRALGIA [None]
  - BURNING SENSATION [None]
  - DIFFICULTY IN WALKING [None]
  - GAIT DISTURBANCE [None]
  - INSOMNIA [None]
  - JOINT SWELLING [None]
  - NEUROPATHY PERIPHERAL [None]
  - OEDEMA PERIPHERAL [None]
  - PAIN IN EXTREMITY [None]
  - RESTLESS LEGS SYNDROME [None]
  - TREMOR [None]
